FAERS Safety Report 9729696 (Version 2)
Quarter: 2015Q3

REPORT INFORMATION
  Report Type: Spontaneous
  Country: US (occurrence: US)
  Receive Date: 20131204
  Receipt Date: 20150804
  Transmission Date: 20151125
  Serious: No
  Sender: FDA-Public Use
  Company Number: US-GILEAD-2009-0020974

PATIENT
  Age: 53 Year
  Sex: Male
  Weight: 88.45 kg

DRUGS (13)
  1. LETAIRIS [Suspect]
     Active Substance: AMBRISENTAN
     Indication: PULMONARY ARTERIAL HYPERTENSION
     Route: 048
     Dates: start: 20090219
  2. SPIRONOLACTONE. [Concomitant]
     Active Substance: SPIRONOLACTONE
  3. LASIX [Concomitant]
     Active Substance: FUROSEMIDE
  4. ASPIRIN. [Concomitant]
     Active Substance: ASPIRIN
  5. XANAX [Concomitant]
     Active Substance: ALPRAZOLAM
  6. CIALIS [Concomitant]
     Active Substance: TADALAFIL
  7. TORSEMIDE. [Concomitant]
     Active Substance: TORSEMIDE
  8. FLOMAX [Concomitant]
     Active Substance: TAMSULOSIN HYDROCHLORIDE
  9. FISH OIL [Concomitant]
     Active Substance: FISH OIL
  10. BENAZEPRIL [Concomitant]
     Active Substance: BENAZEPRIL HYDROCHLORIDE
  11. LOTREL [Concomitant]
     Active Substance: AMLODIPINE BESYLATE\BENAZEPRIL HYDROCHLORIDE
  12. DILTIAZEM [Concomitant]
     Active Substance: DILTIAZEM
  13. LEVAQUIN [Concomitant]
     Active Substance: LEVOFLOXACIN

REACTIONS (4)
  - Pain in extremity [Unknown]
  - Nasal congestion [Unknown]
  - Swelling [Recovering/Resolving]
  - Weight increased [Recovering/Resolving]
